FAERS Safety Report 7096057-2 (Version None)
Quarter: 2010Q4

REPORT INFORMATION
  Report Type: 
  Country: None (occurrence: None)
  Receive Date: 20101101
  Receipt Date: 20101021
  Transmission Date: 20110411
  Serious: Yes (Hospitalization)
  Sender: FDA-Public Use
  Company Number: 2009JP001782

PATIENT
  Age: 20 Year
  Sex: Female
  Weight: 60.3 kg

DRUGS (28)
  1. TACROLIMUS [Suspect]
     Indication: LUPUS NEPHRITIS
     Dosage: 3 MG, /D, ORAL
     Route: 048
     Dates: start: 20080716
  2. MEDROL [Suspect]
     Indication: LUPUS NEPHRITIS
     Dosage: SEE IMAGE
     Route: 048
     Dates: end: 20080812
  3. MEDROL [Suspect]
     Indication: LUPUS NEPHRITIS
     Dosage: SEE IMAGE
     Route: 048
     Dates: start: 20080813, end: 20081007
  4. MEDROL [Suspect]
     Indication: LUPUS NEPHRITIS
     Dosage: SEE IMAGE
     Route: 048
     Dates: start: 20081008, end: 20081202
  5. MEDROL [Suspect]
     Indication: LUPUS NEPHRITIS
     Dosage: SEE IMAGE
     Route: 048
     Dates: start: 20081203, end: 20090304
  6. MEDROL [Suspect]
     Indication: LUPUS NEPHRITIS
     Dosage: SEE IMAGE
     Route: 048
     Dates: start: 20090305, end: 20090501
  7. MEDROL [Suspect]
     Indication: LUPUS NEPHRITIS
     Dosage: SEE IMAGE
     Route: 048
     Dates: start: 20090502, end: 20090626
  8. MEDROL [Suspect]
     Indication: LUPUS NEPHRITIS
     Dosage: SEE IMAGE
     Route: 048
     Dates: start: 20090627, end: 20090925
  9. MEDROL [Suspect]
     Indication: LUPUS NEPHRITIS
     Dosage: SEE IMAGE
     Route: 048
     Dates: start: 20090926, end: 20091225
  10. MEDROL [Suspect]
     Indication: LUPUS NEPHRITIS
     Dosage: SEE IMAGE
     Route: 048
     Dates: start: 20091226, end: 20100326
  11. MEDROL [Suspect]
     Indication: LUPUS NEPHRITIS
     Dosage: SEE IMAGE
     Route: 048
     Dates: start: 20100327
  12. PLETAL [Suspect]
     Dosage: 200 MG/, /D, ORAL
     Route: 048
     Dates: end: 20081006
  13. PREDNISOLONE [Concomitant]
  14. RABEPRAZOLE SODIUM [Concomitant]
  15. BAYASPIRIN (ACETYSALICYLIC ACID) [Concomitant]
  16. WARFARIN SODIUM [Concomitant]
  17. MICARDIS [Concomitant]
  18. EVAMYL (LORMETAZEPAM) [Concomitant]
  19. COTRIM [Concomitant]
  20. FUNGIZONE [Concomitant]
  21. ACTONEL [Concomitant]
  22. LASIX [Concomitant]
  23. PL GRAN. (CAFFEINE, PARACETAMOL, PROMETHAZINE METHYLENE DISALICYLATE, [Concomitant]
  24. FLOMOX (CEFCAPENE PIVOXIL HYDROCHLORIDE) [Concomitant]
  25. KAYTWO N (MENATETRENONE) [Concomitant]
  26. LAC B (LACTOBACILLUS BIFIDUS, LYOPHILIZED) [Concomitant]
  27. LEVOFLOXACIN [Concomitant]
  28. PRIMPERAN (METCLOPRAMIDE HYDROCHLORIDE) [Concomitant]

REACTIONS (16)
  - ACUTE TONSILLITIS [None]
  - DENTAL CARIES [None]
  - DERMATITIS ALLERGIC [None]
  - ECZEMA [None]
  - ENTEROCOLITIS [None]
  - ERYTHEMA [None]
  - GINGIVAL BLEEDING [None]
  - HAEMATOMA [None]
  - HAEMOGLOBIN DECREASED [None]
  - HAEMORRHAGIC DIATHESIS [None]
  - INTERNATIONAL NORMALISED RATIO INCREASED [None]
  - PROTHROMBIN TIME PROLONGED [None]
  - PURPURA [None]
  - UPPER RESPIRATORY TRACT INFLAMMATION [None]
  - URINARY TRACT INFECTION [None]
  - WHITE BLOOD CELL COUNT INCREASED [None]
